FAERS Safety Report 5920083-7 (Version None)
Quarter: 2008Q4

REPORT INFORMATION
  Report Type: 
  Country: None (occurrence: None)
  Receive Date: 20081014
  Receipt Date: 20080930
  Transmission Date: 20090506
  Serious: Yes (Death, Hospitalization, Other)
  Sender: FDA-Public Use
  Company Number: 52994

PATIENT
  Age: 37 Year
  Sex: Male

DRUGS (1)
  1. CYCLOSPORINE [Suspect]
     Indication: STEM CELL TRANSPLANT

REACTIONS (11)
  - AGITATION [None]
  - CENTRAL PONTINE MYELINOLYSIS [None]
  - DRUG LEVEL INCREASED [None]
  - GRAFT VERSUS HOST DISEASE [None]
  - HAEMODIALYSIS [None]
  - HYPERBILIRUBINAEMIA [None]
  - INTRAVENTRICULAR HAEMORRHAGE [None]
  - PSYCHOTIC DISORDER [None]
  - SKIN EXFOLIATION [None]
  - SOMNOLENCE [None]
  - URAEMIC ENCEPHALOPATHY [None]
